FAERS Safety Report 10542702 (Version 2)
Quarter: 2014Q4

REPORT INFORMATION
  Report Type: Report from Study
  Country: AR (occurrence: AR)
  Receive Date: 20141027
  Receipt Date: 20141027
  Transmission Date: 20150529
  Serious: Yes (Death, Other)
  Sender: FDA-Public Use
  Company Number: AR-BRISTOL-MYERS SQUIBB COMPANY-20889226

PATIENT
  Age: 55 Year
  Sex: Female

DRUGS (1)
  1. YERVOY [Suspect]
     Active Substance: IPILIMUMAB
     Dosage: 1DF=50MG/10ML; INTERRUPTED:28MAY2014
     Dates: start: 20140507

REACTIONS (3)
  - Malignant neoplasm progression [Unknown]
  - Urinary tract disorder [Unknown]
  - Death [Fatal]

NARRATIVE: CASE EVENT DATE: 20140528
